FAERS Safety Report 20844484 (Version 1)
Quarter: 2022Q2

REPORT INFORMATION
  Report Type: Spontaneous
  Country: US (occurrence: US)
  Receive Date: 20220518
  Receipt Date: 20220518
  Transmission Date: 20220720
  Serious: No
  Sender: FDA-Public Use
  Company Number: US-NOVOPROD-847072

PATIENT
  Sex: Male
  Weight: 114 kg

DRUGS (3)
  1. NORDITROPIN [Suspect]
     Active Substance: SOMATROPIN
     Indication: Product used for unknown indication
     Dosage: 0.4 MG, QD
     Route: 058
     Dates: start: 202102, end: 202104
  2. NORDITROPIN [Suspect]
     Active Substance: SOMATROPIN
     Dosage: 0.7 MG, QD
     Route: 058
     Dates: start: 202106
  3. NORDITROPIN [Suspect]
     Active Substance: SOMATROPIN
     Dosage: 0.5 MG, QD
     Route: 058
     Dates: start: 202104, end: 202106

REACTIONS (6)
  - Poor quality sleep [Unknown]
  - Somnolence [Unknown]
  - Agitation [Unknown]
  - Muscular weakness [Unknown]
  - Memory impairment [Unknown]
  - Headache [Unknown]
